FAERS Safety Report 9494366 (Version 1)
Quarter: 2013Q3

REPORT INFORMATION
  Report Type: Spontaneous
  Country: BR (occurrence: BR)
  Receive Date: 20130903
  Receipt Date: 20130903
  Transmission Date: 20140515
  Serious: Yes (Other)
  Sender: FDA-Public Use
  Company Number: BR-JNJFOC-20130817065

PATIENT
  Age: 78 Year
  Sex: Female

DRUGS (9)
  1. XARELTO [Suspect]
     Indication: ATRIAL FIBRILLATION
     Route: 048
     Dates: end: 201308
  2. XARELTO [Suspect]
     Indication: ATRIAL FIBRILLATION
     Route: 048
     Dates: end: 2013
  3. XARELTO [Suspect]
     Indication: CEREBROVASCULAR ACCIDENT PROPHYLAXIS
     Route: 048
     Dates: end: 201308
  4. XARELTO [Suspect]
     Indication: CEREBROVASCULAR ACCIDENT PROPHYLAXIS
     Route: 048
     Dates: end: 2013
  5. CARDIZEM [Concomitant]
     Route: 048
  6. NEXIUM [Concomitant]
     Route: 048
  7. MODURETIC [Concomitant]
     Route: 048
  8. LIPITOR [Concomitant]
     Route: 048
  9. CHONDROITIN SULFATE [Concomitant]
     Route: 048

REACTIONS (2)
  - Skin discolouration [Recovered/Resolved]
  - Feeling abnormal [Unknown]
